FAERS Safety Report 12946647 (Version 2)
Quarter: 2016Q4

REPORT INFORMATION
  Report Type: Spontaneous
  Country: US (occurrence: US)
  Receive Date: 20161116
  Receipt Date: 20161117
  Transmission Date: 20170207
  Serious: No
  Sender: FDA-Public Use
  Company Number: US-BAYER-2016-218239

PATIENT
  Age: 54 Year
  Sex: Female
  Weight: 90.7 kg

DRUGS (1)
  1. CLARITIN [Suspect]
     Active Substance: LORATADINE
     Indication: ARTHROPOD BITE
     Dosage: 1 DF, UNK
     Route: 048

REACTIONS (7)
  - Extra dose administered [None]
  - Abdominal discomfort [Unknown]
  - Nausea [Unknown]
  - Hallucination [Unknown]
  - Drug ineffective [None]
  - Therapeutic response unexpected [None]
  - Insomnia [Unknown]
